FAERS Safety Report 23150880 (Version 2)
Quarter: 2023Q4

REPORT INFORMATION
  Report Type: Report from Study
  Country: CN (occurrence: None)
  Receive Date: 20231106
  Receipt Date: 20231110
  Transmission Date: 20240110
  Serious: Yes (Death, Life-Threatening, Hospitalization)
  Sender: FDA-Public Use
  Company Number: 2021A007346

PATIENT
  Age: 23232 Day
  Sex: Male

DRUGS (73)
  1. DURVALUMAB [Suspect]
     Active Substance: DURVALUMAB
     Indication: Non-small cell lung cancer
     Route: 042
     Dates: start: 20201210, end: 20201210
  2. TREMELIMUMAB [Suspect]
     Active Substance: TREMELIMUMAB
     Indication: Non-small cell lung cancer
     Route: 042
     Dates: start: 20201210, end: 20201210
  3. GEMCITABINE [Suspect]
     Active Substance: GEMCITABINE
     Indication: Non-small cell lung cancer
     Route: 042
     Dates: start: 20201210, end: 20201210
  4. CARBOPLATIN [Suspect]
     Active Substance: CARBOPLATIN
     Indication: Non-small cell lung cancer
     Dosage: 5.0 AUC EVERY THREE WEEKS
     Route: 042
     Dates: start: 20201210, end: 20201210
  5. METHYLPREDNISOLON E SODIUM SUCCINATE FOR INJECTION [Concomitant]
     Indication: Nonspecific reaction
     Route: 042
     Dates: start: 20201217, end: 20201218
  6. METHYLPREDNISOLON E SODIUM SUCCINATE FOR INJECTION [Concomitant]
     Indication: Nonspecific reaction
     Route: 042
     Dates: start: 20201218, end: 20201220
  7. METHYLPREDNISOLON E SODIUM SUCCINATE FOR INJECTION [Concomitant]
     Indication: Nonspecific reaction
     Route: 042
     Dates: start: 20201221, end: 20201223
  8. METHYLPREDNISOLON E SODIUM SUCCINATE FOR INJECTION [Concomitant]
     Indication: Nonspecific reaction
     Route: 042
     Dates: start: 20201223, end: 20201226
  9. METHYLPREDNISOLON E SODIUM SUCCINATE FOR INJECTION [Concomitant]
     Indication: Nonspecific reaction
     Route: 042
     Dates: start: 20201226, end: 20201229
  10. METHYLPREDNISOLON E SODIUM SUCCINATE FOR INJECTION [Concomitant]
     Indication: Nonspecific reaction
     Route: 042
     Dates: start: 20201218, end: 20201218
  11. LANSOPRAZOLE [Concomitant]
     Active Substance: LANSOPRAZOLE
     Indication: Gastrointestinal disorder
     Route: 042
     Dates: start: 20201217, end: 20201218
  12. LANSOPRAZOLE [Concomitant]
     Active Substance: LANSOPRAZOLE
     Indication: Gastrointestinal disorder
     Route: 042
     Dates: start: 20201218, end: 20201229
  13. FUROSEMIDE [Concomitant]
     Active Substance: FUROSEMIDE
     Indication: Polyuria
     Route: 042
     Dates: start: 20201217, end: 20201229
  14. METOPROLOL [Concomitant]
     Active Substance: METOPROLOL
     Indication: Myocarditis
     Route: 048
     Dates: start: 20201217, end: 20201229
  15. SPIRONOLACTONE [Concomitant]
     Active Substance: SPIRONOLACTONE
     Indication: Myocarditis
     Route: 048
     Dates: start: 20201217, end: 20201229
  16. DESLANOSIDE [Concomitant]
     Active Substance: DESLANOSIDE
     Indication: Myocarditis
     Dosage: 0.4000 MG 24-HOUR MAINTENANCE
     Route: 042
     Dates: start: 20201217, end: 20201218
  17. DESLANOSIDE [Concomitant]
     Active Substance: DESLANOSIDE
     Indication: Myocarditis
     Dosage: 0.4000 MG 24-HOUR MAINTENANCE
     Route: 042
     Dates: start: 20201223, end: 20201225
  18. DESLANOSIDE [Concomitant]
     Active Substance: DESLANOSIDE
     Indication: Myocarditis
     Dosage: 0.4MG ONCE/SINGLE ADMINISTRATION
     Route: 042
     Dates: start: 20201223, end: 20201223
  19. DESLANOSIDE [Concomitant]
     Active Substance: DESLANOSIDE
     Indication: Myocarditis
     Dosage: 0.2MG ONCE/SINGLE ADMINISTRATION
     Route: 042
     Dates: start: 20201223, end: 20201223
  20. ALBUMIN HUMAN [Concomitant]
     Active Substance: ALBUMIN HUMAN
     Indication: Hypoproteinaemia
     Route: 042
     Dates: start: 20201217, end: 20201221
  21. ALBUMIN HUMAN [Concomitant]
     Active Substance: ALBUMIN HUMAN
     Indication: Hypoalbuminaemia
     Route: 042
     Dates: start: 20201217, end: 20201221
  22. ALBUMIN HUMAN [Concomitant]
     Active Substance: ALBUMIN HUMAN
     Indication: Hypoproteinaemia
     Route: 042
     Dates: start: 20201223, end: 20201225
  23. ALBUMIN HUMAN [Concomitant]
     Active Substance: ALBUMIN HUMAN
     Indication: Hypoalbuminaemia
     Route: 042
     Dates: start: 20201223, end: 20201225
  24. ALBUMIN HUMAN [Concomitant]
     Active Substance: ALBUMIN HUMAN
     Indication: Hypoproteinaemia
     Route: 042
     Dates: start: 20201228, end: 20201229
  25. ALBUMIN HUMAN [Concomitant]
     Active Substance: ALBUMIN HUMAN
     Indication: Hypoalbuminaemia
     Route: 042
     Dates: start: 20201228, end: 20201229
  26. ALBUMIN HUMAN [Concomitant]
     Active Substance: ALBUMIN HUMAN
     Indication: Hypoproteinaemia
     Route: 042
     Dates: start: 202101, end: 202101
  27. ALBUMIN HUMAN [Concomitant]
     Active Substance: ALBUMIN HUMAN
     Indication: Hypoalbuminaemia
     Route: 042
     Dates: start: 202101, end: 202101
  28. DILTIAZEM [Concomitant]
     Active Substance: DILTIAZEM
     Indication: Myocarditis
     Route: 048
     Dates: start: 20201217, end: 20201221
  29. ISOPHANE PROTAMINE BIOSYNTHETIC HUMAN INSULIN INJECTION [Concomitant]
     Indication: Blood glucose
     Dosage: 10 IU DAILY
     Route: 042
     Dates: start: 20201217, end: 20201220
  30. ISOPHANE PROTAMINE BIOSYNTHETIC HUMAN INSULIN INJECTION [Concomitant]
     Indication: Blood glucose
     Dosage: 400 IU DAILY
     Route: 042
     Dates: start: 20201217, end: 20201217
  31. DESLANOSIDE INJECTION [Concomitant]
     Indication: Myocarditis
     Dosage: 2.0MG ONCE/SINGLE ADMINISTRATION
     Route: 042
     Dates: start: 20201217, end: 20201217
  32. HUMAN IMMUNOGLOBULIN(P H4)FOR INTRAVENOUS INJECTION [Concomitant]
     Indication: Hepatitis
     Route: 042
     Dates: start: 20201217, end: 20201220
  33. ULINASTATIN INJECTION [Concomitant]
     Indication: Hepatitis
     Dosage: 10 KIU ONCE
     Route: 042
     Dates: start: 20201218, end: 20201218
  34. POLYENE PHOSPHATIDYLCHOLIN E INJECTION [Concomitant]
     Indication: Hepatitis
     Route: 042
     Dates: start: 20201218, end: 20201221
  35. METOCLOPRAMIDE DIHYDROCHLORIDE INJECTION [Concomitant]
     Indication: Vomiting
     Route: 030
     Dates: start: 20201218, end: 20201218
  36. GLUTATHIONE FOR INJECTION [Concomitant]
     Indication: Hepatitis
     Route: 042
     Dates: start: 20201218, end: 20201229
  37. GLUTATHIONE FOR INJECTION [Concomitant]
     Indication: Immune-mediated hepatitis
     Route: 042
     Dates: start: 20201218, end: 20201229
  38. GLUTATHIONE FOR INJECTION [Concomitant]
     Indication: Hepatitis
     Route: 042
     Dates: start: 202101, end: 202101
  39. GLUTATHIONE FOR INJECTION [Concomitant]
     Indication: Immune-mediated hepatitis
     Route: 042
     Dates: start: 202101, end: 202101
  40. RECOMBINANT HUMAN INTERLEUKIN-11(I) FOR INJECTION [Concomitant]
     Indication: Thrombocytopenia
     Route: 058
     Dates: start: 20201221, end: 20201222
  41. RECOMBINANT HUMAN INTERLEUKIN-11(I) FOR INJECTION [Concomitant]
     Indication: Thrombocytopenia
     Route: 058
     Dates: start: 20201220, end: 20201220
  42. AMIODARONE HYDROCHLORIDE [Concomitant]
     Active Substance: AMIODARONE HYDROCHLORIDE
     Indication: Myocarditis
     Route: 048
     Dates: start: 20201223, end: 20201229
  43. AMIODARONE HYDROCHLORIDE [Concomitant]
     Active Substance: AMIODARONE HYDROCHLORIDE
     Indication: Myocarditis
     Route: 048
     Dates: start: 20201216, end: 20201217
  44. FUROSEMIDE [Concomitant]
     Active Substance: FUROSEMIDE
     Indication: Polyuria
     Dosage: 20.0MG ONCE/SINGLE ADMINISTRATION
     Route: 042
     Dates: start: 20201223, end: 20201225
  45. FUROSEMIDE [Concomitant]
     Active Substance: FUROSEMIDE
     Indication: Prophylaxis
     Dosage: 20.0MG ONCE/SINGLE ADMINISTRATION
     Route: 042
     Dates: start: 20201223, end: 20201225
  46. FUROSEMIDE [Concomitant]
     Active Substance: FUROSEMIDE
     Indication: Polyuria
     Dosage: 20.0MG ONCE/SINGLE ADMINISTRATION
     Route: 042
     Dates: start: 202101, end: 202101
  47. FUROSEMIDE [Concomitant]
     Active Substance: FUROSEMIDE
     Indication: Prophylaxis
     Dosage: 20.0MG ONCE/SINGLE ADMINISTRATION
     Route: 042
     Dates: start: 202101, end: 202101
  48. ENEMA SORBITOLI [Concomitant]
     Indication: Constipation
     Route: 054
     Dates: start: 20201227, end: 20201227
  49. ENEMA SORBITOLI [Concomitant]
     Indication: Constipation
     Route: 054
     Dates: start: 20201220, end: 20201220
  50. ILAPRAZOLE ENTERIC-COATED TABLETS [Concomitant]
     Indication: Gastritis
     Route: 048
     Dates: start: 20201229, end: 20210109
  51. PREDNISONE ACETATE [Concomitant]
     Active Substance: PREDNISONE ACETATE
     Indication: Nonspecific reaction
     Route: 048
     Dates: start: 20201229, end: 20210109
  52. LOW-MOLECULAR-WEI GHT HEPARINS CALCIUM [Concomitant]
     Indication: Anticoagulant therapy
     Dosage: 4100 IU TWO TIMES A DAY
     Route: 058
     Dates: start: 20201216, end: 20201229
  53. BIFIDOBACTERIUM TRIPLE LIVE CAPSULE [Concomitant]
     Indication: Constipation
     Route: 048
     Dates: start: 20201228, end: 20201229
  54. MULTIPLE TRACE ELEMENT INJECTION [Concomitant]
     Indication: Trachoma
     Dosage: 10.0ML UNKNOWN
     Route: 042
     Dates: start: 202101, end: 202101
  55. DIAMMONIUM GLYCYRRHIZINATE INFUSION SOLUTIONS [Concomitant]
     Indication: Immune-mediated hepatitis
     Dosage: 10.0ML UNKNOWN
     Route: 042
     Dates: start: 202101, end: 202101
  56. RECOMBINANT HUMAN GRANULOCYTE STIMULATING FACTOR INJECTION [Concomitant]
     Indication: Job change
     Dosage: 150.0UG/INHAL UNKNOWN
     Route: 058
     Dates: start: 202101, end: 202101
  57. RECOMBINANT HUMAN THROMBOPOIETIN INJECTION [Concomitant]
     Indication: Platelet count decreased
     Dosage: 1 ML,UNKNOWN
     Route: 058
     Dates: start: 202101, end: 202101
  58. PIPERACILLIN SODIUM AND TAZOBACTAM SODIUM FOR INJECTION [Concomitant]
     Indication: Infection
     Dosage: 1.25G UNKNOWN
     Route: 042
     Dates: start: 202101, end: 202101
  59. PARACETAMOL OXYCODONE TABLETS [Concomitant]
     Indication: Pain
     Dosage: 5.0MG UNKNOWN
     Route: 048
     Dates: start: 202101, end: 202101
  60. AMINO ACIDS, SOURCE UNSPECIFIED [Concomitant]
     Active Substance: AMINO ACIDS, SOURCE UNSPECIFIED
     Indication: Nutritional supplementation
     Dosage: 250.0ML UNKNOWN
     Route: 042
     Dates: start: 202101, end: 202101
  61. DIHYDROXYPROPYLTH EOPHYLLINE INJECTION [Concomitant]
     Indication: Chronic obstructive pulmonary disease
     Dosage: 2.0ML UNKNOWN
     Route: 042
     Dates: start: 202101, end: 202101
  62. COMPOUND VITAMIN INJECTION [Concomitant]
     Indication: Vitamin supplementation
     Dosage: 5.0ML UNKNOWN
     Route: 042
     Dates: start: 202101, end: 202101
  63. SUPPOSITORIES GLYCEROL [Concomitant]
     Indication: Constipation
     Dosage: 20.0ML UNKNOWN
     Route: 054
     Dates: start: 202101, end: 202101
  64. SALBUTAMOL SULFATE INJECTION [Concomitant]
     Indication: Chronic obstructive pulmonary disease
     Dosage: 2.0ML UNKNOWN
     Route: 055
     Dates: start: 202101, end: 202101
  65. POTASSIUM CHLORIDE [Concomitant]
     Active Substance: POTASSIUM CHLORIDE
     Indication: Prophylaxis
     Dosage: 10.0ML UNKNOWN
     Route: 042
     Dates: start: 202101, end: 202101
  66. BENZYLPENICILLIN SODIUM FOR INJECTION [Concomitant]
     Indication: Skin test
     Dosage: 800.000 IU
     Route: 058
     Dates: start: 202101, end: 202101
  67. DOXEPIN HYDROCHLORIDE [Concomitant]
     Active Substance: DOXEPIN HYDROCHLORIDE
     Indication: Sleep disorder
     Dosage: 25.0MG UNKNOWN
     Route: 048
     Dates: start: 202101, end: 202101
  68. LIDOCAINE HYDROCHLORIDE [Concomitant]
     Active Substance: DEXTROSE MONOHYDRATE\EPINEPHRINE\EPINEPHRINE BITARTRATE\LIDOCAINE\LIDOCAINE HYDROCHLORIDE\LIDOCAINE
     Indication: Coronary artery disease
     Dosage: 10.0ML UNKNOWN
     Route: 042
     Dates: start: 202101, end: 202101
  69. TRYPSIN FOR INJECTION [Concomitant]
     Indication: Oedema peripheral
     Dosage: 12.500 IU
     Route: 042
     Dates: start: 202101, end: 202101
  70. KANG^AI INJECTION [Concomitant]
     Indication: Immunisation
     Dosage: 20.0ML UNKNOWN
     Route: 042
     Dates: start: 202101, end: 202101
  71. METHYLPREDNISOLON E ACETATE [Concomitant]
     Indication: Nonspecific reaction
     Dosage: 5.0MG UNKNOWN
     Route: 048
     Dates: start: 202101, end: 202101
  72. LLAPRAZOLE ENTERIC-COATED TABLETS [Concomitant]
     Indication: Gastritis
     Dosage: 5.0MG UNKNOWN
     Route: 048
     Dates: start: 202101, end: 202101
  73. AMIODARONE [Concomitant]
     Active Substance: AMIODARONE
     Indication: Myocarditis
     Dosage: 0.2G UNKNOWN
     Route: 048
     Dates: start: 202101, end: 202101

REACTIONS (2)
  - Death [Fatal]
  - Thrombocytopenia [Not Recovered/Not Resolved]

NARRATIVE: CASE EVENT DATE: 20201218
